FAERS Safety Report 26080568 (Version 1)
Quarter: 2025Q4

REPORT INFORMATION
  Report Type: Spontaneous
  Country: US (occurrence: US)
  Receive Date: 20251124
  Receipt Date: 20251124
  Transmission Date: 20260117
  Serious: No
  Sender: LEO PHARM
  Company Number: US-LEO Pharma-384402

PATIENT
  Age: 45 Year
  Sex: Male

DRUGS (2)
  1. ADBRY [Suspect]
     Active Substance: TRALOKINUMAB-LDRM
     Indication: Eczema
     Route: 058
     Dates: start: 20251105
  2. ADBRY [Suspect]
     Active Substance: TRALOKINUMAB-LDRM
     Indication: Eczema
     Route: 058
     Dates: start: 20251105

REACTIONS (5)
  - Dry skin [Unknown]
  - Nasopharyngitis [Unknown]
  - Pruritus [Unknown]
  - Vision blurred [Unknown]
  - Chest discomfort [Unknown]

NARRATIVE: CASE EVENT DATE: 20251110
